FAERS Safety Report 5166631-9 (Version None)
Quarter: 2006Q4

REPORT INFORMATION
  Report Type: 
  Country: None (occurrence: None)
  Receive Date: 20061207
  Receipt Date: 20061123
  Transmission Date: 20070319
  Serious: Yes (Hospitalization)
  Sender: FDA-Public Use
  Company Number: FRWYE634223NOV06

PATIENT
  Sex: Male
  Weight: 85 kg

DRUGS (4)
  1. ENBREL [Suspect]
     Indication: PSORIASIS
     Route: 058
     Dates: start: 20050520
  2. ASPIRIN [Concomitant]
     Route: 065
     Dates: start: 20030101
  3. PERINDOPRIL ERBUMINE [Concomitant]
     Route: 065
     Dates: start: 20030101
  4. SIBUTRAMINE [Concomitant]
     Route: 065

REACTIONS (3)
  - ANGINA PECTORIS [None]
  - CORONARY ARTERY STENOSIS [None]
  - DISEASE RECURRENCE [None]
